FAERS Safety Report 10234299 (Version 1)
Quarter: 2014Q2

REPORT INFORMATION
  Report Type: Spontaneous
  Country: US (occurrence: US)
  Receive Date: 20140612
  Receipt Date: 20140612
  Transmission Date: 20141212
  Serious: Yes (Hospitalization, Other)
  Sender: FDA-Public Use
  Company Number: US-ELI_LILLY_AND_COMPANY-US201406000851

PATIENT
  Sex: Female

DRUGS (4)
  1. INSULIN LISPRO [Suspect]
     Indication: TYPE 1 DIABETES MELLITUS
     Dosage: UNK, PRN
     Dates: start: 2013
  2. PLAVIX [Concomitant]
  3. SIMVASTATIN [Concomitant]
  4. METOPROLOL [Concomitant]
     Dosage: 25 MG, BID

REACTIONS (9)
  - Traumatic renal injury [Unknown]
  - Traumatic haemorrhage [Unknown]
  - Fall [Unknown]
  - Rib fracture [Unknown]
  - Renal failure acute [Unknown]
  - Impaired gastric emptying [Unknown]
  - Gastric disorder [Unknown]
  - Animal bite [Unknown]
  - Blood glucose increased [Unknown]
